FAERS Safety Report 23462035 (Version 2)
Quarter: 2024Q2

REPORT INFORMATION
  Report Type: Report from Study
  Country: CA (occurrence: CA)
  Receive Date: 20240131
  Receipt Date: 20240530
  Transmission Date: 20240716
  Serious: Yes (Hospitalization, Other)
  Sender: FDA-Public Use
  Company Number: None

PATIENT

DRUGS (7)
  1. MEPOLIZUMAB [Suspect]
     Active Substance: MEPOLIZUMAB
     Indication: Asthma
     Dosage: 100 MG, Q4W
     Route: 058
     Dates: start: 20211221
  2. SYMBICORT [Concomitant]
     Active Substance: BUDESONIDE\FORMOTEROL FUMARATE DIHYDRATE
     Indication: Product used for unknown indication
     Dosage: 2 PUFF(S), BID
  3. ALVESCO [Concomitant]
     Active Substance: CICLESONIDE
     Indication: Product used for unknown indication
     Dosage: 2 PUFF(S), TID
  4. ALVESCO [Concomitant]
     Active Substance: CICLESONIDE
     Dosage: 2 PUFF(S), BID, 200 MCG
  5. COMBIVENT [Concomitant]
     Active Substance: ALBUTEROL SULFATE\IPRATROPIUM BROMIDE
     Indication: Product used for unknown indication
     Dosage: UNK
  6. VENTOLIN [Concomitant]
     Active Substance: ALBUTEROL SULFATE
     Indication: Product used for unknown indication
     Dosage: UNK
  7. PREDNISONE [Concomitant]
     Active Substance: PREDNISONE
     Indication: Product used for unknown indication
     Dosage: 25 MG, QD, X8

REACTIONS (11)
  - Infective myositis [Unknown]
  - Arthritis infective [Unknown]
  - Hip arthroplasty [Unknown]
  - Nasal congestion [Unknown]
  - Condition aggravated [Unknown]
  - Pain [Unknown]
  - Fear [Unknown]
  - Inflammation [Unknown]
  - Mobility decreased [Recovering/Resolving]
  - Full blood count abnormal [Unknown]
  - Post procedural infection [Unknown]
